FAERS Safety Report 24701715 (Version 1)
Quarter: 2024Q4

REPORT INFORMATION
  Report Type: Spontaneous
  Country: GB (occurrence: GB)
  Receive Date: 20241205
  Receipt Date: 20241205
  Transmission Date: 20250114
  Serious: Yes (Hospitalization, Other)
  Sender: SANDOZ
  Company Number: GB-ROCHE-1108452

PATIENT
  Age: 61 Year
  Sex: Female
  Weight: 62 kg

DRUGS (45)
  1. CARBOPLATIN [Suspect]
     Active Substance: CARBOPLATIN
     Dosage: 500 MG (INITIATED 12 OCT 2012)
     Route: 065
     Dates: start: 20121012
  2. CARBOPLATIN [Suspect]
     Active Substance: CARBOPLATIN
     Indication: Breast cancer
     Dosage: 750 MG
     Route: 065
     Dates: start: 20120817
  3. CARBOPLATIN [Suspect]
     Active Substance: CARBOPLATIN
     Dosage: UNK
     Route: 065
     Dates: start: 20120817
  4. DOCETAXEL [Suspect]
     Active Substance: DOCETAXEL
     Dosage: 120 MG
     Route: 065
     Dates: start: 20120817, end: 2012
  5. DOCETAXEL [Suspect]
     Active Substance: DOCETAXEL
     Dosage: 120 MG
     Route: 065
     Dates: start: 20120817, end: 2012
  6. DOCETAXEL [Suspect]
     Active Substance: DOCETAXEL
     Dosage: 120 MG
     Route: 065
     Dates: start: 20121210
  7. DOCETAXEL [Suspect]
     Active Substance: DOCETAXEL
     Dosage: 120 MG
     Route: 065
     Dates: start: 20121210
  8. DOCETAXEL [Suspect]
     Active Substance: DOCETAXEL
     Dosage: 80 MG
     Route: 065
     Dates: start: 20121012
  9. DOCETAXEL [Suspect]
     Active Substance: DOCETAXEL
     Dosage: 80 MG (INITIATED ON 12 OCT 2012)
     Route: 065
     Dates: start: 20121012
  10. DOCETAXEL [Suspect]
     Active Substance: DOCETAXEL
     Indication: Breast cancer
     Dosage: UNK
     Route: 065
     Dates: start: 20120817
  11. DOCETAXEL [Suspect]
     Active Substance: DOCETAXEL
     Dosage: UNK
     Route: 065
     Dates: start: 20121012
  12. DOCETAXEL [Suspect]
     Active Substance: DOCETAXEL
     Dosage: UNK
     Route: 065
     Dates: start: 20121210
  13. FILGRASTIM [Suspect]
     Active Substance: FILGRASTIM
     Indication: Product used for unknown indication
     Dosage: UNK
     Route: 065
     Dates: start: 20120818, end: 20120823
  14. FILGRASTIM [Suspect]
     Active Substance: FILGRASTIM
     Dosage: UNK
     Route: 065
     Dates: start: 20120914, end: 20120920
  15. FILGRASTIM [Suspect]
     Active Substance: FILGRASTIM
     Dosage: UNK
     Route: 065
     Dates: start: 20121012, end: 20121019
  16. GLICLAZIDE [Suspect]
     Active Substance: GLICLAZIDE
     Indication: Product used for unknown indication
     Dosage: UNIT=NOT AVAILABLE DOSAGE2: UNIT=NOT AVAILABLE DOSAGE3: UNIT=NOT AVAILABLE DOSAGE4: UNIT=NOT
     Route: 065
  17. METFORMIN [Suspect]
     Active Substance: METFORMIN HYDROCHLORIDE
     Indication: Product used for unknown indication
     Dosage: 2 G
     Route: 048
  18. METFORMIN [Suspect]
     Active Substance: METFORMIN HYDROCHLORIDE
     Dosage: 2 G
     Route: 050
  19. METFORMIN HYDROCHLORIDE [Suspect]
     Active Substance: METFORMIN HYDROCHLORIDE
     Indication: Product used for unknown indication
     Dosage: 2 G
     Route: 065
  20. PERTUZUMAB [Suspect]
     Active Substance: PERTUZUMAB
     Indication: Breast cancer
     Dosage: 1 MG, Q3W DATE OF LAST DOSE PRIOR TO SAE: 12/OCT/2012
     Route: 065
     Dates: start: 20120817
  21. PERTUZUMAB [Suspect]
     Active Substance: PERTUZUMAB
     Dosage: UNK
     Route: 065
     Dates: start: 20121012
  22. PERTUZUMAB [Suspect]
     Active Substance: PERTUZUMAB
     Indication: Breast cancer
     Dosage: 1 MG  (DATE OF LAST DOSE PRIOR TO SAE: 12 OCT 2012)
     Route: 042
     Dates: start: 20120817
  23. PERTUZUMAB [Suspect]
     Active Substance: PERTUZUMAB
     Dosage: 0.158 MG
     Route: 042
     Dates: start: 20121012
  24. PERTUZUMAB [Suspect]
     Active Substance: PERTUZUMAB
     Dosage: 1 MG Q3WK
     Route: 042
     Dates: start: 20120817, end: 20121012
  25. PERTUZUMAB [Suspect]
     Active Substance: PERTUZUMAB
     Dosage: 420 MG
     Route: 065
     Dates: start: 20121012
  26. PERTUZUMAB [Suspect]
     Active Substance: PERTUZUMAB
     Dosage: 546 MG
     Route: 065
     Dates: start: 20120817
  27. PERTUZUMAB [Suspect]
     Active Substance: PERTUZUMAB
     Dosage: UNK
     Route: 042
  28. PERTUZUMAB [Suspect]
     Active Substance: PERTUZUMAB
     Dosage: UNK
     Route: 042
  29. PERTUZUMAB [Suspect]
     Active Substance: PERTUZUMAB
     Dosage: UNK (DOSE FORM:230)
     Route: 065
     Dates: start: 20120817
  30. PERTUZUMAB [Suspect]
     Active Substance: PERTUZUMAB
     Dosage: UNK DOSE FORM: 124
     Route: 058
     Dates: start: 20120817
  31. TRASTUZUMAB [Suspect]
     Active Substance: TRASTUZUMAB
     Dosage: 420 MG
     Route: 042
     Dates: start: 20121012
  32. TRASTUZUMAB [Suspect]
     Active Substance: TRASTUZUMAB
     Dosage: 420 MG
     Route: 058
     Dates: start: 20120817
  33. TRASTUZUMAB [Suspect]
     Active Substance: TRASTUZUMAB
     Indication: Breast cancer
     Dosage: 546 MG
     Route: 058
     Dates: start: 20120817
  34. CALCIUM\CHOLECALCIFEROL [Concomitant]
     Active Substance: CALCIUM\CHOLECALCIFEROL
     Indication: Product used for unknown indication
     Dosage: UNK
     Route: 065
     Dates: start: 20120817
  35. CHLORPHENIRAMINE MALEATE [Concomitant]
     Active Substance: CHLORPHENIRAMINE MALEATE
     Indication: Product used for unknown indication
     Dosage: BOLUS
     Route: 042
     Dates: start: 20120817
  36. DEXAMETHASONE [Concomitant]
     Active Substance: DEXAMETHASONE
     Indication: Product used for unknown indication
     Dosage: UNK
     Route: 065
     Dates: start: 20120816, end: 20120818
  37. METOCLOPRAMIDE [Concomitant]
     Active Substance: METOCLOPRAMIDE
     Indication: Product used for unknown indication
     Dosage: 80 MILLIGRAM (40-80 MG)
     Route: 065
     Dates: start: 20120914, end: 20120920
  38. ONDANSETRON [Concomitant]
     Active Substance: ONDANSETRON
     Indication: Product used for unknown indication
     Dosage: UNK
     Route: 048
     Dates: start: 20120817, end: 20120821
  39. ONDANSETRON [Concomitant]
     Active Substance: ONDANSETRON
     Dosage: UNK
     Route: 050
     Dates: start: 20120914, end: 20120918
  40. ONDANSETRON [Concomitant]
     Active Substance: ONDANSETRON
     Dosage: 6 MG (4-6 MG)
     Route: 050
     Dates: start: 20121012, end: 20121018
  41. ONDANSETRON [Concomitant]
     Active Substance: ONDANSETRON
     Dosage: UNK
     Route: 065
     Dates: start: 20120914, end: 20120919
  42. RANITIDINE [Concomitant]
     Active Substance: RANITIDINE
     Dosage: BOLUS
     Route: 042
  43. RANITIDINE [Concomitant]
     Active Substance: RANITIDINE
     Indication: Product used for unknown indication
     Dosage: UNK (BOLUS)
     Route: 050
     Dates: start: 20120817
  44. SIMVASTATIN [Concomitant]
     Active Substance: SIMVASTATIN
     Indication: Product used for unknown indication
     Route: 065
  45. SIMVASTATIN [Concomitant]
     Active Substance: SIMVASTATIN
     Indication: Product used for unknown indication
     Route: 065

REACTIONS (6)
  - Diarrhoea [Recovered/Resolved]
  - Diarrhoea [Recovered/Resolved]
  - Nausea [Recovering/Resolving]
  - Vomiting [Recovering/Resolving]
  - Off label use [Unknown]
  - Off label use [Unknown]

NARRATIVE: CASE EVENT DATE: 20120817
